FAERS Safety Report 8945908 (Version 7)
Quarter: 2016Q2

REPORT INFORMATION
  Report Type: Spontaneous
  Country: JP (occurrence: JP)
  Receive Date: 20121205
  Receipt Date: 20160614
  Transmission Date: 20160815
  Serious: Yes (Disabling)
  Sender: FDA-Public Use
  Company Number: JP-ASTRAZENECA-2012SE90499

PATIENT
  Age: 18686 Day
  Sex: Female
  Weight: 40 kg

DRUGS (25)
  1. ALEVIATIN [Concomitant]
     Active Substance: PHENYTOIN SODIUM
     Indication: EPILEPSY
     Route: 041
     Dates: start: 20121020, end: 20121026
  2. OZAGREL [Concomitant]
     Active Substance: OZAGREL
     Indication: VASOSPASM
     Route: 041
     Dates: start: 20121029, end: 20121107
  3. ROHYPNOL [Concomitant]
     Active Substance: FLUNITRAZEPAM
     Route: 048
  4. SOLACET F [Concomitant]
     Route: 041
     Dates: end: 20121122
  5. LOXONIN [Concomitant]
     Active Substance: LOXOPROFEN SODIUM
     Route: 048
     Dates: start: 20121120, end: 20121120
  6. RASENAZOLIN [Concomitant]
     Active Substance: CEFAZOLIN SODIUM
     Indication: INFECTION PROPHYLAXIS
     Route: 041
     Dates: start: 20121020, end: 20121021
  7. RASENAZOLIN [Concomitant]
     Active Substance: CEFAZOLIN SODIUM
     Indication: INFECTION PROPHYLAXIS
     Dosage: 1 TO 4 VIALS DAILY
     Route: 041
     Dates: start: 20121122, end: 20121224
  8. ULTIVA [Concomitant]
     Active Substance: REMIFENTANIL HYDROCHLORIDE
     Route: 042
     Dates: start: 20121122, end: 20121122
  9. ISOTONIC SODIUM CHLORIDE SOLUTION KIT [Concomitant]
     Dosage: 2 TO 4 DF DAILY
     Route: 042
     Dates: start: 20121122
  10. TAKEPRON [Concomitant]
     Active Substance: LANSOPRAZOLE
     Indication: PROPHYLAXIS AGAINST GASTROINTESTINAL ULCER
     Route: 048
     Dates: start: 20121026, end: 20121029
  11. ERIL [Concomitant]
     Active Substance: ENALAPRIL MALEATE
     Indication: VASOSPASM
     Route: 041
     Dates: start: 20121022, end: 20121105
  12. CELECOX [Concomitant]
     Active Substance: CELECOXIB
     Dosage: 200 TO 400 MG DAILY
     Route: 048
     Dates: end: 20121121
  13. SEROQUEL [Suspect]
     Active Substance: QUETIAPINE FUMARATE
     Indication: ANXIETY
     Route: 048
     Dates: start: 20121116
  14. NORVASC [Suspect]
     Active Substance: AMLODIPINE BESYLATE
     Indication: HYPERTENSION
     Route: 048
     Dates: start: 20121020
  15. SP [Concomitant]
     Dates: end: 20121120
  16. OMEPRAL [Suspect]
     Active Substance: OMEPRAZOLE
     Indication: PROPHYLAXIS AGAINST GASTROINTESTINAL ULCER
     Route: 042
     Dates: start: 20121020, end: 20121025
  17. NORVASC [Suspect]
     Active Substance: AMLODIPINE BESYLATE
     Indication: HYPERTENSION
     Dosage: 2.5 TO 5 MG ONCE DAILY
     Route: 048
     Dates: end: 20121124
  18. RADICUT [Concomitant]
     Active Substance: EDARAVONE
     Indication: CEREBRAL ISCHAEMIA
     Route: 041
     Dates: start: 20121029, end: 20121111
  19. HEPARIN SODIUM. [Concomitant]
     Active Substance: HEPARIN SODIUM
  20. NEXIUM [Suspect]
     Active Substance: ESOMEPRAZOLE MAGNESIUM
     Indication: PROPHYLAXIS AGAINST GASTROINTESTINAL ULCER
     Route: 048
     Dates: start: 20121030, end: 20121121
  21. EXCEGRAN [Concomitant]
     Active Substance: ZONISAMIDE
     Indication: EPILEPSY
     Route: 048
     Dates: start: 20121025
  22. ISOTONIC SODIUM CHLORIDE SOLUTION KIT [Concomitant]
     Dosage: 1 TO 2 AMPULES DAILY
     Route: 042
     Dates: start: 20121122, end: 20121123
  23. OMEPRAL [Suspect]
     Active Substance: OMEPRAZOLE
     Indication: PROPHYLAXIS AGAINST GASTROINTESTINAL ULCER
     Route: 042
     Dates: start: 20121122, end: 20121123
  24. FENTANYL. [Concomitant]
     Active Substance: FENTANYL
     Route: 042
     Dates: start: 20121122, end: 20121122
  25. ELNEOPA NO.2 [Concomitant]
     Active Substance: AMINO ACIDS\CARBOHYDRATES\ELECTROLYTES NOS\VITAMINS
     Route: 041

REACTIONS (2)
  - Blindness [Not Recovered/Not Resolved]
  - Optic neuropathy [Not Recovered/Not Resolved]

NARRATIVE: CASE EVENT DATE: 20121124
